FAERS Safety Report 12419730 (Version 2)
Quarter: 2016Q4

REPORT INFORMATION
  Report Type: Spontaneous
  Country: JP (occurrence: JP)
  Receive Date: 20160531
  Receipt Date: 20161212
  Transmission Date: 20170207
  Serious: Yes (Hospitalization, Other)
  Sender: FDA-Public Use
  Company Number: JP-GLAXOSMITHKLINE-JP2015JPN016323

PATIENT
  Age: 23 Year
  Sex: Female
  Weight: 45 kg

DRUGS (5)
  1. EPZICOM [Suspect]
     Active Substance: ABACAVIR SULFATE\LAMIVUDINE
     Indication: HIV INFECTION
     Route: 048
  2. KALETRA [Suspect]
     Active Substance: LOPINAVIR\RITONAVIR
     Indication: HIV INFECTION
     Dosage: UNK
     Route: 048
     Dates: start: 20140528
  3. COMBIVIR [Suspect]
     Active Substance: LAMIVUDINE\ZIDOVUDINE
     Indication: HIV INFECTION
     Dosage: UNK
     Route: 048
     Dates: start: 20140528
  4. LEXIVA [Suspect]
     Active Substance: FOSAMPRENAVIR CALCIUM
     Indication: HIV INFECTION
     Dosage: UNK
     Route: 048
  5. TIVICAY [Suspect]
     Active Substance: DOLUTEGRAVIR SODIUM
     Indication: HIV INFECTION
     Route: 048

REACTIONS (10)
  - Faeces soft [Unknown]
  - Headache [Recovered/Resolved]
  - Live birth [Unknown]
  - Toxic epidermal necrolysis [Recovered/Resolved]
  - Hyperthermia [Recovered/Resolved]
  - Foetal growth restriction [Unknown]
  - Rash generalised [Recovered/Resolved]
  - Diarrhoea [Unknown]
  - Erythema multiforme [Recovered/Resolved]
  - Exposure during pregnancy [Unknown]
